FAERS Safety Report 8131628-3 (Version None)
Quarter: 2012Q1

REPORT INFORMATION
  Report Type: 
  Country: None (occurrence: None)
  Receive Date: 20120208
  Receipt Date: 20120125
  Transmission Date: 20120608
  Serious: Yes (Death, Life-Threatening, Hospitalization, Other)
  Sender: FDA-Public Use
  Company Number: 2012MA001162

PATIENT
  Sex: Male
  Weight: 127.0072 kg

DRUGS (11)
  1. RYTHMOL SR [Concomitant]
  2. DIGOXIN [Suspect]
     Dosage: 0.125 MG;QD;PO
     Route: 048
     Dates: start: 20061129, end: 20071010
  3. ALPRAZOLAM [Concomitant]
  4. DOXAZOSIN [Concomitant]
  5. ALLOPURINOL [Concomitant]
  6. VITAMIN K TAB [Concomitant]
  7. LISINOPRIL [Concomitant]
  8. CARDENE [Concomitant]
  9. LASIX [Concomitant]
  10. METOPROLOL TARTRATE [Concomitant]
  11. COUMADIN [Concomitant]

REACTIONS (32)
  - BRONCHITIS [None]
  - ATRIOVENTRICULAR BLOCK [None]
  - ARRHYTHMIA [None]
  - HEADACHE [None]
  - PUPILLARY REFLEX IMPAIRED [None]
  - PNEUMONIA [None]
  - PUPIL FIXED [None]
  - CARDIAC ARREST [None]
  - GENERAL PHYSICAL HEALTH DETERIORATION [None]
  - HAEMORRHAGE INTRACRANIAL [None]
  - INTRAVENTRICULAR HAEMORRHAGE [None]
  - TRICUSPID VALVE INCOMPETENCE [None]
  - GOUT [None]
  - HYDROCEPHALUS [None]
  - CARDIAC FAILURE CONGESTIVE [None]
  - ANGINA PECTORIS [None]
  - SYNCOPE [None]
  - EMPHYSEMA [None]
  - ATRIAL FLUTTER [None]
  - BRAIN HERNIATION [None]
  - ATELECTASIS [None]
  - CHEST PAIN [None]
  - CARDIAC VALVE DISEASE [None]
  - INTERVERTEBRAL DISC DEGENERATION [None]
  - CEREBRAL HAEMORRHAGE [None]
  - BRAIN DEATH [None]
  - HYPERTENSION [None]
  - ATRIAL FIBRILLATION [None]
  - MENTAL STATUS CHANGES [None]
  - UNRESPONSIVE TO STIMULI [None]
  - PLEURAL EFFUSION [None]
  - BODY TEMPERATURE DECREASED [None]
